FAERS Safety Report 6689243-4 (Version None)
Quarter: 2010Q2

REPORT INFORMATION
  Report Type: 
  Country: None (occurrence: None)
  Receive Date: 20100420
  Receipt Date: 20100409
  Transmission Date: 20101027
  Serious: Yes (Other)
  Sender: FDA-Public Use
  Company Number: US-MERCK-1004USA01323

PATIENT
  Age: 87 Year
  Sex: Female

DRUGS (3)
  1. FOSAMAX [Suspect]
     Route: 048
  2. PLAVIX [Suspect]
     Route: 065
  3. LIPITOR [Suspect]
     Route: 065

REACTIONS (4)
  - ADVERSE EVENT [None]
  - AORTIC ANEURYSM [None]
  - CEREBROVASCULAR ACCIDENT [None]
  - HAEMORRHAGE [None]
